FAERS Safety Report 4962937-4 (Version None)
Quarter: 2006Q2

REPORT INFORMATION
  Report Type: 
  Country: None (occurrence: None)
  Receive Date: 20060405
  Receipt Date: 20060327
  Transmission Date: 20061013
  Serious: Yes (Other)
  Sender: FDA-Public Use
  Company Number: PHEH2006US04070

PATIENT
  Age: 53 Year
  Sex: Male
  Weight: 84.807 kg

DRUGS (11)
  1. ZOMETA [Suspect]
     Indication: METASTASES TO BONE
     Dosage: 4 MG, QMO
     Dates: start: 20020308, end: 20051202
  2. TAXOTERE [Concomitant]
     Dosage: ^ON AND OFF^
  3. TAXOTERE [Concomitant]
     Dosage: 5 CYCLES WITH CARBOPLATIN
     Dates: start: 20050901
  4. TAXOTERE [Concomitant]
     Dosage: 6 CYCLES WEEKLY WITH EMCYT
     Dates: start: 20040301
  5. CARBOPLATIN [Concomitant]
     Dosage: 5 CYCLES WITH TAXOTERE
     Dates: start: 20050901
  6. DEXAMETHASONE TAB [Concomitant]
     Dosage: PRE AND POST TAXOTERE
     Dates: start: 20050901
  7. EMCYT [Concomitant]
  8. ZOLADEX [Concomitant]
     Dates: start: 20020101
  9. REGLAN                                  /USA/ [Concomitant]
  10. RADIATION THERAPY [Concomitant]
     Dosage: HIP AND SPINE
     Dates: start: 20020101
  11. RADIATION THERAPY [Concomitant]
     Dosage: HIP AND SPINE
     Dates: start: 20030101

REACTIONS (5)
  - BONE DISORDER [None]
  - GINGIVAL INFECTION [None]
  - OSTEONECROSIS [None]
  - PAIN IN JAW [None]
  - TOOTHACHE [None]
